FAERS Safety Report 17788595 (Version 1)
Quarter: 2020Q2

REPORT INFORMATION
  Report Type: Spontaneous
  Country: US (occurrence: US)
  Receive Date: 20200514
  Receipt Date: 20200514
  Transmission Date: 20200714
  Serious: Yes (Hospitalization, Other)
  Sender: FDA-Public Use
  Company Number: US-UPSHER-SMITH LABORATORIES, LLC-2020USL00246

PATIENT
  Sex: Male

DRUGS (2)
  1. AMIODARONE HYDROCHLORIDE. [Suspect]
     Active Substance: AMIODARONE HYDROCHLORIDE
     Indication: ATRIAL FIBRILLATION
     Dosage: UNK
     Route: 048
     Dates: start: 200906
  2. UNSPECIFIED MEDICATIONS [Suspect]
     Active Substance: UNSPECIFIED INGREDIENT
     Indication: PULMONARY FIBROSIS

REACTIONS (15)
  - Chest pain [Unknown]
  - Irritability [Unknown]
  - Restlessness [Unknown]
  - Asthenia [Unknown]
  - Oedema [Unknown]
  - Pulmonary fibrosis [Unknown]
  - Gait disturbance [Unknown]
  - Nervousness [Unknown]
  - Unevaluable event [Unknown]
  - Pneumonia [Unknown]
  - Off label use [Unknown]
  - Pulmonary embolism [Unknown]
  - Interstitial lung disease [Unknown]
  - Disturbance in attention [Unknown]
  - Depression [Unknown]

NARRATIVE: CASE EVENT DATE: 200906
